FAERS Safety Report 5080474-6 (Version None)
Quarter: 2006Q3

REPORT INFORMATION
  Report Type: 
  Country: None (occurrence: None)
  Receive Date: 20060815
  Receipt Date: 20010917
  Transmission Date: 20061208
  Serious: Yes (Hospitalization)
  Sender: FDA-Public Use
  Company Number: FR-SOLVAY-00201004201

PATIENT
  Age: 26461 Day
  Sex: Male
  Weight: 72 kg

DRUGS (4)
  1. METOPROLOL TARTRATE [Concomitant]
     Indication: CORONARY ARTERY DISEASE
     Dosage: DAILY DOSE: UNK. FREQUENCY:UNKNOWN
     Route: 065
     Dates: start: 20010420
  2. ACEON [Suspect]
     Indication: CORONARY ARTERY DISEASE
     Dosage: DAILY DOSE: 2 DF.
     Route: 048
     Dates: start: 20010502
  3. ISOSORBIDE MONONITRATE [Concomitant]
     Indication: ILL-DEFINED DISORDER
     Dosage: DAILY DOSE: UNK. FREQUENCY:UNKNOWN
     Route: 065
     Dates: start: 20010413
  4. CERIVASTATIN [Concomitant]
     Indication: ILL-DEFINED DISORDER
     Dosage: DAILY DOSE: UNK. FREQUENCY:UNKNOWN
     Route: 065
     Dates: start: 20010423

REACTIONS (1)
  - CORONARY ARTERY DISEASE [None]
